FAERS Safety Report 12775164 (Version 2)
Quarter: 2016Q4

REPORT INFORMATION
  Report Type: Spontaneous
  Country: US (occurrence: US)
  Receive Date: 20160923
  Receipt Date: 20161006
  Transmission Date: 20170207
  Serious: Yes (Hospitalization)
  Sender: FDA-Public Use
  Company Number: US-INCYTE CORPORATION-2016IN005807

PATIENT
  Age: 24 Year
  Sex: Female

DRUGS (1)
  1. JAKAFI [Suspect]
     Active Substance: RUXOLITINIB
     Indication: MYELOFIBROSIS
     Dosage: 10 MG, BID (TWICE DAILY)
     Route: 048
     Dates: start: 20160901

REACTIONS (2)
  - Graft versus host disease [Unknown]
  - Skin ulcer haemorrhage [Unknown]

NARRATIVE: CASE EVENT DATE: 20160912
